FAERS Safety Report 8546074-8 (Version None)
Quarter: 2012Q3

REPORT INFORMATION
  Report Type: 
  Country: None (occurrence: None)
  Receive Date: 20120727
  Receipt Date: 20111207
  Transmission Date: 20120928
  Serious: No
  Sender: FDA-Public Use
  Company Number: US-ASTRAZENECA-2011SE74163

PATIENT
  Sex: Male

DRUGS (3)
  1. LUNEKTOM [Concomitant]
  2. SEROQUEL [Suspect]
     Indication: BIPOLAR DISORDER
     Route: 048
  3. CYMBALTA [Concomitant]

REACTIONS (2)
  - INSOMNIA [None]
  - INCORRECT DOSE ADMINISTERED [None]
